FAERS Safety Report 8523223-9 (Version None)
Quarter: 2012Q3

REPORT INFORMATION
  Report Type: 
  Country: None (occurrence: None)
  Receive Date: 20120720
  Receipt Date: 20120712
  Transmission Date: 20120928
  Serious: Yes (Hospitalization, Other)
  Sender: FDA-Public Use
  Company Number: US-BAYER-2012-023904

PATIENT
  Age: 22 Year
  Sex: Female
  Weight: 77.098 kg

DRUGS (25)
  1. YAZ [Suspect]
     Indication: CONTRACEPTION
     Dosage: UNK
     Dates: start: 20061001, end: 20081001
  2. ALBUTEROL [Concomitant]
     Dosage: UNK
     Dates: start: 20000101
  3. HYDROCODONE BITARTRATE AND ACETAMINOPHEN [Concomitant]
     Dosage: 7.5/50 [MG]
  4. DICLOFENAC [Concomitant]
     Dosage: 75 MG, UNK
  5. CEFUROXIME [Concomitant]
     Dosage: 500 MG, UNK
  6. LO/OVRAL [Concomitant]
  7. LOESTRIN 1.5/30 [Concomitant]
  8. YAZ [Suspect]
     Indication: POLYCYSTIC OVARIES
  9. CYCLOBENZAPRINE [Concomitant]
     Indication: MUSCLE RELAXANT THERAPY
     Dosage: 10 MG, UNK
  10. LORTAB [Concomitant]
  11. TAMIFLU [Concomitant]
     Dosage: 75 MG, UNK
  12. YAZ [Suspect]
     Indication: MENSTRUAL CYCLE MANAGEMENT
     Dosage: UNK
     Dates: start: 20091001, end: 20091124
  13. NASONEX [Concomitant]
     Dosage: 50 ?G, UNK
  14. PROPOXYPHENE NAPSYLATE W/ ACETAMINOPHEN [Concomitant]
     Indication: ANALGESIC THERAPY
  15. ALPRAZOLAM [Concomitant]
     Dosage: 0.5 MG, UNK
  16. PATANASE [Concomitant]
     Dosage: 0.6 UNK, UNK
  17. LIDODERM [Concomitant]
     Dosage: 50 UNK, UNK
  18. PROZAC [Concomitant]
  19. PHENTERMINE [Concomitant]
     Indication: WEIGHT DECREASED
     Dosage: UNK
     Dates: start: 20090801, end: 20100201
  20. LOTEMAX [Concomitant]
     Dosage: 0.5 UNK, UNK
  21. FLUOXETINE HCL [Concomitant]
     Dosage: 20 MG, UNK
  22. METFORMIN HYDROCHLORIDE [Concomitant]
     Dosage: 500 MG, UNK
  23. YAZ [Suspect]
     Indication: ENDOMETRIOSIS
  24. DIAZEPAM [Concomitant]
     Indication: ANXIETY
     Dosage: 2 MG, UNK
  25. LUPRON DEPOT [Concomitant]
     Dosage: UNK
     Dates: start: 20090301, end: 20090801

REACTIONS (8)
  - INJURY [None]
  - PULMONARY EMBOLISM [None]
  - CHOLECYSTITIS [None]
  - ANXIETY [None]
  - GALLBLADDER DISORDER [None]
  - PAIN [None]
  - GENERAL PHYSICAL HEALTH DETERIORATION [None]
  - EMOTIONAL DISTRESS [None]
